APPROVED DRUG PRODUCT: FLUVOXAMINE MALEATE
Active Ingredient: FLUVOXAMINE MALEATE
Strength: 50MG
Dosage Form/Route: TABLET;ORAL
Application: A075893 | Product #002
Applicant: TEVA PHARMACEUTICALS USA INC
Approved: Sep 10, 2002 | RLD: No | RS: No | Type: DISCN